FAERS Safety Report 5393744-9 (Version None)
Quarter: 2007Q3

REPORT INFORMATION
  Report Type: 
  Country: None (occurrence: None)
  Receive Date: 20070719
  Receipt Date: 20070719
  Transmission Date: 20080115
  Serious: Yes (Hospitalization)
  Sender: FDA-Public Use
  Company Number: None

PATIENT
  Age: 59 Year
  Sex: Male
  Weight: 93 kg

DRUGS (11)
  1. LISINOPRIL [Suspect]
  2. DEXAMETHASONE 0.5MG TAB [Concomitant]
  3. MIRTAZAPINE [Concomitant]
  4. ASPIRIN [Concomitant]
  5. HYDROCHLOROTHIAZIDE [Concomitant]
  6. LISINOPRIL [Concomitant]
  7. MEPRAZOLE [Concomitant]
  8. VITAMIN B COMPLEX/VITAMIN C [Concomitant]
  9. IBUPROFEN [Concomitant]
  10. VARDENAFIL HCL [Concomitant]
  11. NICOTINE [Concomitant]

REACTIONS (1)
  - ANGIOEDEMA [None]
